FAERS Safety Report 13810158 (Version 1)
Quarter: 2017Q3

REPORT INFORMATION
  Report Type: Report from Study
  Country: CN (occurrence: CN)
  Receive Date: 20170728
  Receipt Date: 20170728
  Transmission Date: 20171127
  Serious: Yes (Other)
  Sender: FDA-Public Use
  Company Number: CN-VIIV HEALTHCARE LIMITED-CN2017GSK117244

PATIENT
  Age: 35 Year
  Sex: Female

DRUGS (1)
  1. LAMIVUDINE. [Suspect]
     Active Substance: LAMIVUDINE
     Indication: HEPATITIS B
     Dosage: UNK
     Route: 048

REACTIONS (3)
  - Ectopic pregnancy [Unknown]
  - Abortion induced [Unknown]
  - Exposure during pregnancy [Unknown]

NARRATIVE: CASE EVENT DATE: 20140326
